FAERS Safety Report 6964797-9 (Version None)
Quarter: 2010Q3

REPORT INFORMATION
  Report Type: 
  Country: None (occurrence: None)
  Receive Date: 20100903
  Receipt Date: 20100802
  Transmission Date: 20110219
  Serious: No
  Sender: FDA-Public Use
  Company Number: US-PFIZER INC-2010086855

PATIENT
  Sex: Female
  Weight: 68.027 kg

DRUGS (4)
  1. CLINDAMYCIN HCL [Suspect]
     Indication: TOOTH INFECTION
     Dosage: 300 MG, 4X/DAY
     Route: 048
     Dates: start: 20100702, end: 20100701
  2. CLINDAMYCIN HCL [Suspect]
     Indication: TOOTH ABSCESS
  3. NEXIUM [Concomitant]
     Indication: GASTRITIS EROSIVE
     Dosage: 40 MG, DAILY
     Route: 048
  4. NEXIUM [Concomitant]
     Indication: GASTROOESOPHAGEAL REFLUX DISEASE

REACTIONS (1)
  - DYSPEPSIA [None]
